FAERS Safety Report 6092806-0 (Version None)
Quarter: 2009Q1

REPORT INFORMATION
  Report Type: 
  Country: None (occurrence: None)
  Receive Date: 20090225
  Receipt Date: 20090212
  Transmission Date: 20090719
  Serious: No
  Sender: FDA-Public Use
  Company Number: DE-ROCHE-563311

PATIENT
  Sex: Male
  Weight: 2.5 kg

DRUGS (7)
  1. ROACCUTAN [Suspect]
     Indication: ACNE
     Dates: start: 20060101, end: 20060801
  2. ROACCUTAN [Suspect]
     Dates: start: 20070201, end: 20071101
  3. ROACCUTAN [Suspect]
     Dosage: EVERY SECOND OR THIRD DAY
     Dates: start: 20071215, end: 20080215
  4. GRIPPOSTAD [Concomitant]
  5. PARACETAMOL [Concomitant]
  6. METOCLOPRAMIDE [Concomitant]
     Dosage: DRUG NAME: MCP TROPFEN
  7. DIANE-35 [Concomitant]
     Indication: CHEMICAL CONTRACEPTION
     Dates: start: 19960101, end: 20080501

REACTIONS (2)
  - NO ADVERSE EVENT [None]
  - NORMAL NEWBORN [None]
